FAERS Safety Report 7485513-0 (Version None)
Quarter: 2011Q2

REPORT INFORMATION
  Report Type: 
  Country: None (occurrence: None)
  Receive Date: 20110517
  Receipt Date: 20101223
  Transmission Date: 20111010
  Serious: Yes (Hospitalization)
  Sender: FDA-Public Use
  Company Number: US-BAYER-2010-007965

PATIENT
  Sex: Female

DRUGS (6)
  1. CIPRO [Suspect]
     Indication: URINARY TRACT INFECTION
  2. LEVOXYL [Concomitant]
     Dosage: UNK
  3. PROTONIX [Concomitant]
     Dosage: UNK
  4. FLECAINIDE ACETATE [Concomitant]
     Dosage: UNK
  5. PLAVIX [Concomitant]
     Dosage: UNK
  6. VICODIN [Concomitant]
     Dosage: UNK

REACTIONS (1)
  - NEUROPATHY PERIPHERAL [None]
